FAERS Safety Report 9883591 (Version 2)
Quarter: 2014Q1

REPORT INFORMATION
  Report Type: Spontaneous
  Country: BR (occurrence: BR)
  Receive Date: 20140210
  Receipt Date: 20140212
  Transmission Date: 20141002
  Serious: Yes (Other)
  Sender: FDA-Public Use
  Company Number: BR-AMGEN-BRASP2014009295

PATIENT
  Age: 72 Year
  Sex: Female

DRUGS (1)
  1. PROLIA [Suspect]
     Indication: PRODUCT USED FOR UNKNOWN INDICATION
     Dosage: UNK UNK, Q6MO
     Route: 042
     Dates: end: 201311

REACTIONS (5)
  - Respiratory tract infection [Recovering/Resolving]
  - Urinary tract infection [Unknown]
  - Cough [Recovering/Resolving]
  - Productive cough [Recovering/Resolving]
  - Upper respiratory tract infection [Recovering/Resolving]
